FAERS Safety Report 6330042-0 (Version None)
Quarter: 2009Q3

REPORT INFORMATION
  Report Type: 
  Country: None (occurrence: None)
  Receive Date: 20090825
  Receipt Date: 20090817
  Transmission Date: 20100115
  Serious: Yes (Hospitalization)
  Sender: FDA-Public Use
  Company Number: 090818-0000917

PATIENT
  Age: 72 Year
  Sex: Male

DRUGS (4)
  1. CHEMET [Suspect]
     Indication: DRUG USE FOR UNKNOWN INDICATION
     Dosage: 200 MG;TID;PO
     Route: 048
     Dates: start: 20090722
  2. COUMADIN [Concomitant]
  3. INDOR [Concomitant]
  4. VASOTEC [Concomitant]

REACTIONS (7)
  - ABDOMINAL PAIN UPPER [None]
  - ANXIETY [None]
  - BLOOD PRESSURE INADEQUATELY CONTROLLED [None]
  - BLOOD PRESSURE INCREASED [None]
  - DYSPNOEA [None]
  - GALLBLADDER PAIN [None]
  - NAUSEA [None]
